FAERS Safety Report 16866555 (Version 1)
Quarter: 2019Q3

REPORT INFORMATION
  Report Type: Spontaneous
  Country: US (occurrence: US)
  Receive Date: 20190930
  Receipt Date: 20190930
  Transmission Date: 20191005
  Serious: No
  Sender: FDA-Public Use
  Company Number: US-ALLERGAN-1928739US

PATIENT
  Sex: Female
  Weight: 107.95 kg

DRUGS (3)
  1. VRAYLAR [Suspect]
     Active Substance: CARIPRAZINE
     Indication: DEPRESSION
     Dosage: 1.5 MG, QD
     Route: 048
     Dates: start: 20180730, end: 20181203
  2. VRAYLAR [Suspect]
     Active Substance: CARIPRAZINE
     Indication: ANXIETY
  3. VRAYLAR [Suspect]
     Active Substance: CARIPRAZINE
     Indication: POST-TRAUMATIC STRESS DISORDER

REACTIONS (2)
  - Feeling abnormal [Unknown]
  - Off label use [Unknown]
